FAERS Safety Report 7337977-0 (Version None)
Quarter: 2011Q1

REPORT INFORMATION
  Report Type: 
  Country: None (occurrence: None)
  Receive Date: 20110224
  Receipt Date: 20110216
  Transmission Date: 20110831
  Serious: Yes (Hospitalization, Other)
  Sender: FDA-Public Use
  Company Number: NGX_00300_2011

PATIENT
  Sex: Male

DRUGS (1)
  1. QUTENZA [Suspect]
     Indication: NEURALGIA
     Dosage: (1 DF 1X, DF TOPICAL)
     Route: 061
     Dates: start: 20110216

REACTIONS (5)
  - APPLICATION SITE PAIN [None]
  - HYPOTENSION [None]
  - FALL [None]
  - BRADYCARDIA [None]
  - VERTIGO [None]
